FAERS Safety Report 6028907-2 (Version None)
Quarter: 2009Q1

REPORT INFORMATION
  Report Type: 
  Country: None (occurrence: None)
  Receive Date: 20090105
  Receipt Date: 20090105
  Transmission Date: 20090719
  Serious: Yes (Other)
  Sender: FDA-Public Use
  Company Number: None

PATIENT
  Age: 62 Year
  Sex: Female
  Weight: 136.5327 kg

DRUGS (2)
  1. AVELOX [Suspect]
     Indication: EAR INFECTION
     Dosage: 1 TABLET ONCE A DAY PO
     Route: 048
     Dates: start: 20081117, end: 20081122
  2. AVELOX [Suspect]
     Indication: SINUSITIS
     Dosage: 1 TABLET ONCE A DAY PO
     Route: 048
     Dates: start: 20081117, end: 20081122

REACTIONS (1)
  - DIARRHOEA [None]
